FAERS Safety Report 8765103 (Version 1)
Quarter: 2012Q4

REPORT INFORMATION
  Report Type: 
  Country: US (occurrence: US)
  Receive Date: 20120903
  Receipt Date: 20120903
  Transmission Date: 20130627
  Serious: No
  Sender: FDA-Public Use
  Company Number: US-BIOGENIDEC-2012BI034411

PATIENT
  Sex: Male

DRUGS (2)
  1. TYSABRI [Suspect]
     Indication: MULTIPLE SCLEROSIS
     Route: 042
     Dates: start: 20110805, end: 20111123
  2. AVONEX [Concomitant]
     Indication: MULTIPLE SCLEROSIS
     Route: 030
     Dates: start: 20050506

REACTIONS (6)
  - Pain [Not Recovered/Not Resolved]
  - Hair colour changes [Unknown]
  - Decreased appetite [Not Recovered/Not Resolved]
  - Fear [Not Recovered/Not Resolved]
  - Dental caries [Not Recovered/Not Resolved]
  - Alopecia [Unknown]
